FAERS Safety Report 4747123-5 (Version None)
Quarter: 2005Q3

REPORT INFORMATION
  Report Type: 
  Country: None (occurrence: None)
  Receive Date: 20050815
  Receipt Date: 20050801
  Transmission Date: 20060218
  Serious: Yes (Death)
  Sender: FDA-Public Use
  Company Number: US_0504116538

PATIENT
  Age: 58 Year
  Sex: Male
  Weight: 103 kg

DRUGS (4)
  1. ZYPREXA [Suspect]
     Indication: ANXIETY
     Dosage: 20 MG/1 DAY
     Dates: start: 20020920
  2. EFFEXOR [Concomitant]
  3. DEPAKOTE [Concomitant]
  4. CLONAZEPAM [Concomitant]

REACTIONS (15)
  - AORTIC VALVE INCOMPETENCE [None]
  - BUNDLE BRANCH BLOCK RIGHT [None]
  - CARDIOMYOPATHY [None]
  - CONDITION AGGRAVATED [None]
  - DILATATION ATRIAL [None]
  - HYPERLIPIDAEMIA [None]
  - INCREASED APPETITE [None]
  - MITRAL VALVE INCOMPETENCE [None]
  - MYOCARDIAL INFARCTION [None]
  - PALPITATIONS [None]
  - PERICARDIAL EFFUSION [None]
  - PLEURAL EFFUSION [None]
  - POSTPERICARDIOTOMY SYNDROME [None]
  - VENTRICULAR EXTRASYSTOLES [None]
  - WEIGHT INCREASED [None]
